FAERS Safety Report 14612590 (Version 9)
Quarter: 2020Q3

REPORT INFORMATION
  Report Type: Report from Study
  Country: US (occurrence: US)
  Receive Date: 20180308
  Receipt Date: 20200729
  Transmission Date: 20201102
  Serious: Yes (Hospitalization, Other)
  Sender: FDA-Public Use
  Company Number: US-SA-2018SA062083

PATIENT

DRUGS (12)
  1. BUPROPION. [Concomitant]
     Active Substance: BUPROPION
     Indication: DEPRESSION
     Dosage: 100 MG, BID
     Dates: start: 2008
  2. BACLOFEN. [Concomitant]
     Active Substance: BACLOFEN
     Indication: MUSCLE SPASTICITY
     Dosage: 10 MG, 7 TABLETS/DAY
     Route: 065
     Dates: start: 2002
  3. ACYCLOVIR [ACICLOVIR] [Concomitant]
     Active Substance: ACYCLOVIR
     Dosage: 400 MG, QD
     Route: 065
     Dates: start: 201802
  4. CLONAZEPAM. [Suspect]
     Active Substance: CLONAZEPAM
     Indication: MUSCLE RELAXANT THERAPY
     Dosage: 2 MG, 1 TAB/DAY
     Route: 065
     Dates: start: 2005
  5. SYNTHROID [Concomitant]
     Active Substance: LEVOTHYROXINE SODIUM
     Indication: FUNGAL INFECTION
     Dosage: 25 MG, QD
     Route: 065
     Dates: start: 2014
  6. ALEMTUZUMAB [Suspect]
     Active Substance: ALEMTUZUMAB
     Indication: MULTIPLE SCLEROSIS
     Dosage: 12 MG, QD
     Route: 041
     Dates: start: 20180220, end: 20180222
  7. CLONAZEPAM. [Suspect]
     Active Substance: CLONAZEPAM
     Indication: SLEEP DISORDER
  8. DIPHENHYDRAMINE HYDROCHLORIDE. [Suspect]
     Active Substance: DIPHENHYDRAMINE HYDROCHLORIDE
     Dosage: UNK
     Route: 065
  9. PROVIGIL [Concomitant]
     Active Substance: MODAFINIL
     Indication: POOR QUALITY SLEEP
     Dosage: UNK UNK,UNK
     Route: 065
     Dates: start: 2007
  10. LIPITOR [Concomitant]
     Active Substance: ATORVASTATIN CALCIUM
     Indication: BLOOD CHOLESTEROL
     Dosage: 40 MG, QD
     Route: 065
     Dates: start: 2006
  11. TIZANIDINE. [Concomitant]
     Active Substance: TIZANIDINE
     Indication: CLONUS
     Dosage: 4 MG, 8 TABS/DAY
     Route: 065
     Dates: start: 2002
  12. VESICARE [Concomitant]
     Active Substance: SOLIFENACIN SUCCINATE
     Indication: BLADDER DISORDER
     Dosage: 5 MG, 3TABS/DAY
     Route: 065
     Dates: start: 2005, end: 201809

REACTIONS (22)
  - Escherichia urinary tract infection [Unknown]
  - Somnolence [Unknown]
  - Asthma [Unknown]
  - Speech disorder [Unknown]
  - Loss of consciousness [Recovered/Resolved]
  - Hypertension [Recovered/Resolved]
  - Pneumonia escherichia [Unknown]
  - Fatigue [Unknown]
  - Neoplasm malignant [Unknown]
  - Autoimmune disorder [Unknown]
  - Liver disorder [Recovered/Resolved]
  - Liver function test increased [Recovered/Resolved]
  - Malaise [Unknown]
  - Adverse reaction [Unknown]
  - Infusion related reaction [Unknown]
  - Electrocardiogram ST segment elevation [Unknown]
  - Poor venous access [Not Recovered/Not Resolved]
  - Insomnia [Recovered/Resolved]
  - Blood pressure increased [Recovered/Resolved]
  - Feeling abnormal [Unknown]
  - Depressed level of consciousness [Recovered/Resolved]
  - Escherichia sepsis [Unknown]

NARRATIVE: CASE EVENT DATE: 2018
